FAERS Safety Report 13211001 (Version 1)
Quarter: 2017Q1

REPORT INFORMATION
  Report Type: Spontaneous
  Country: US (occurrence: US)
  Receive Date: 20170210
  Receipt Date: 20170210
  Transmission Date: 20170428
  Serious: Yes (Other)
  Sender: FDA-Public Use
  Company Number: US-CELGENEUS-USA-2015082671

PATIENT

DRUGS (4)
  1. BORTEZOMIB [Concomitant]
     Active Substance: BORTEZOMIB
     Indication: PLASMA CELL MYELOMA
     Dosage: 1 MILLIGRAM/SQ. METER, DAYS -4, -1, +2 AND +5
     Route: 041
  2. DEXAMETHASONE. [Concomitant]
     Active Substance: DEXAMETHASONE
     Indication: PLASMA CELL MYELOMA
     Dosage: 20 MILLIGRAM, DAY -4 TO -1 AND +2 TO +5.
     Route: 065
  3. THALOMID [Suspect]
     Active Substance: THALIDOMIDE
     Indication: PLASMA CELL MYELOMA
     Dosage: 100 MILLIGRAM, DAY -4 TO DAY +5
     Route: 048
  4. MELPHALAN [Concomitant]
     Active Substance: MELPHALAN
     Indication: PLASMA CELL MYELOMA
     Dosage: 100 MILLIGRAM/SQ. METER, DAYS -4 AND -1
     Route: 065

REACTIONS (32)
  - Hypoalbuminaemia [Unknown]
  - Blood disorder [Unknown]
  - Decreased appetite [Unknown]
  - Hyperkalaemia [Unknown]
  - Hypernatraemia [Unknown]
  - Hepatobiliary disease [Unknown]
  - Mental disorder [Unknown]
  - Cytomegalovirus infection [Unknown]
  - Soft tissue infection [Unknown]
  - Hypophosphataemia [Unknown]
  - Metabolic disorder [Unknown]
  - Respiratory disorder [Unknown]
  - Skin disorder [Unknown]
  - Hypokalaemia [Unknown]
  - Hypomagnesaemia [Unknown]
  - Musculoskeletal disorder [Unknown]
  - Renal disorder [Unknown]
  - Eye disorder [Unknown]
  - Urinary tract infection [Unknown]
  - Infection [Unknown]
  - Device related infection [Unknown]
  - Enterococcal infection [Unknown]
  - Gastrointestinal disorder [Unknown]
  - Cardiac disorder [Unknown]
  - Oesophagitis [Unknown]
  - Immune system disorder [Unknown]
  - Hypocalcaemia [Unknown]
  - Pneumonia [Unknown]
  - Bacteraemia [Unknown]
  - Adverse event [Unknown]
  - Haemorrhage [Unknown]
  - Hyperglycaemia [Unknown]
